FAERS Safety Report 7685539-8 (Version None)
Quarter: 2011Q3

REPORT INFORMATION
  Report Type: 
  Country: None (occurrence: None)
  Receive Date: 20110816
  Receipt Date: 20110808
  Transmission Date: 20111222
  Serious: Yes (Hospitalization)
  Sender: FDA-Public Use
  Company Number: US-PFIZER INC-2011110561

PATIENT
  Sex: Female

DRUGS (11)
  1. ADRIAMYCIN PFS [Suspect]
     Indication: BREAST CANCER
     Dosage: 110 MG, UNK
     Route: 042
     Dates: start: 20110112, end: 20110101
  2. HYDROMORPHONE HYDROCHLORIDE [Concomitant]
  3. FUROSEMIDE [Concomitant]
  4. CITALOPRAM [Concomitant]
  5. CYTOXAN [Suspect]
     Indication: BREAST CANCER
     Dosage: 1095 MG, UNK
     Route: 042
     Dates: start: 20110112, end: 20110101
  6. CLONIDINE [Concomitant]
  7. NOVOLIN 70/30 [Concomitant]
  8. LEVOTHYROXINE SODIUM [Concomitant]
  9. IXEMPRA KIT [Suspect]
     Indication: BREAST CANCER
     Dosage: 80 MG, UNK
     Route: 042
     Dates: start: 20110406, end: 20110101
  10. AMLODIPINE [Concomitant]
  11. LORAZEPAM [Concomitant]

REACTIONS (5)
  - PNEUMONIA [None]
  - THROMBOCYTOPENIA [None]
  - ANAEMIA [None]
  - LEUKOPENIA [None]
  - NEUTROPENIA [None]
